FAERS Safety Report 7668238-8 (Version None)
Quarter: 2011Q3

REPORT INFORMATION
  Report Type: 
  Country: None (occurrence: None)
  Receive Date: 20110808
  Receipt Date: 20110803
  Transmission Date: 20111222
  Serious: Yes (Death, Life-Threatening)
  Sender: FDA-Public Use
  Company Number: DE-JNJFOC-20110801374

PATIENT
  Age: 90 Year
  Sex: Male

DRUGS (8)
  1. HALDOL [Suspect]
     Indication: PRODUCT USED FOR UNKNOWN INDICATION
     Route: 030
     Dates: start: 20040807
  2. FUROSEMIDE [Concomitant]
     Route: 048
     Dates: end: 20040806
  3. ISOSORBIDE DINITRATE [Concomitant]
     Route: 048
     Dates: end: 20040806
  4. DIAZEPAM [Suspect]
     Indication: PRODUCT USED FOR UNKNOWN INDICATION
     Route: 030
     Dates: start: 20040807
  5. PANTOPRAZOLE [Concomitant]
     Route: 048
     Dates: end: 20040806
  6. DIGIMERCK [Concomitant]
     Route: 048
     Dates: end: 20040806
  7. CORVATON [Concomitant]
     Route: 048
     Dates: end: 20040806
  8. BISOPROLOL FUMARATE [Concomitant]
     Route: 048
     Dates: end: 20040806

REACTIONS (4)
  - CARDIAC FAILURE [None]
  - RESTLESSNESS [None]
  - DEHYDRATION [None]
  - DEATH [None]
